FAERS Safety Report 8020762-4 (Version None)
Quarter: 2012Q1

REPORT INFORMATION
  Report Type: 
  Country: None (occurrence: None)
  Receive Date: 20120104
  Receipt Date: 20111223
  Transmission Date: 20120608
  Serious: Yes (Disabling, Other)
  Sender: FDA-Public Use
  Company Number: US-BIOGENIDEC-2011BI015261

PATIENT
  Age: 39 Year
  Sex: Male
  Weight: 88 kg

DRUGS (2)
  1. TYSABRI [Suspect]
     Indication: MULTIPLE SCLEROSIS
     Route: 042
     Dates: start: 20090731
  2. ACETAMINOPHEN [Concomitant]

REACTIONS (2)
  - RETINAL DETACHMENT [None]
  - FALL [None]
